FAERS Safety Report 23363659 (Version 4)
Quarter: 2024Q1

REPORT INFORMATION
  Report Type: Spontaneous
  Country: US (occurrence: US)
  Receive Date: 20240103
  Receipt Date: 20240216
  Transmission Date: 20240409
  Serious: Yes (Hospitalization)
  Sender: FDA-Public Use
  Company Number: US-EXELIXIS-CABO-23072162

PATIENT
  Age: 48 Year
  Sex: Female

DRUGS (8)
  1. NIVOLUMAB [Suspect]
     Active Substance: NIVOLUMAB
     Indication: Renal cell carcinoma
     Dosage: UNK, Q4WEEKS
     Dates: start: 20231207
  2. CABOMETYX [Suspect]
     Active Substance: CABOZANTINIB S-MALATE
     Indication: Renal cell carcinoma
     Dosage: 40 MG, QD
     Dates: start: 20231207
  3. CABOMETYX [Suspect]
     Active Substance: CABOZANTINIB S-MALATE
     Dosage: 40 MG, QD
     Dates: start: 202312
  4. CABOMETYX [Suspect]
     Active Substance: CABOZANTINIB S-MALATE
     Dosage: 40 MG, QD
     Dates: end: 20240202
  5. TYLENOL [Concomitant]
     Active Substance: ACETAMINOPHEN
     Indication: Product used for unknown indication
  6. AMLODIPINE [Concomitant]
     Active Substance: AMLODIPINE BESYLATE
     Indication: Product used for unknown indication
  7. UREA [Concomitant]
     Active Substance: UREA
     Indication: Product used for unknown indication
  8. UREA [Concomitant]
     Active Substance: UREA
     Indication: Product used for unknown indication

REACTIONS (18)
  - Cholelithiasis [Unknown]
  - Blood pressure increased [Recovering/Resolving]
  - Dry skin [Recovered/Resolved]
  - Dysphonia [Recovered/Resolved]
  - Throat irritation [Recovering/Resolving]
  - Stress [Unknown]
  - Glossitis [Recovered/Resolved]
  - Genital erythema [Recovered/Resolved]
  - Vulvovaginal dryness [Recovered/Resolved]
  - Headache [Recovered/Resolved]
  - Central nervous system lesion [Unknown]
  - Hair colour changes [Not Recovered/Not Resolved]
  - Nasopharyngitis [Not Recovered/Not Resolved]
  - Dry mouth [Recovering/Resolving]
  - Gastrooesophageal reflux disease [Unknown]
  - Gait inability [Unknown]
  - Contusion [Unknown]
  - Thyroid hormones increased [Unknown]

NARRATIVE: CASE EVENT DATE: 20231201
